FAERS Safety Report 25633283 (Version 1)
Quarter: 2025Q3

REPORT INFORMATION
  Report Type: Report from Study
  Country: EU (occurrence: EU)
  Receive Date: 20250801
  Receipt Date: 20250801
  Transmission Date: 20251021
  Serious: Yes (Death, Other)
  Sender: ROCHE
  Company Number: EU-ROCHE-10000352427

PATIENT

DRUGS (4)
  1. ATEZOLIZUMAB [Suspect]
     Active Substance: ATEZOLIZUMAB
     Indication: Non-small cell lung cancer
     Route: 065
  2. NIVOLUMAB [Suspect]
     Active Substance: NIVOLUMAB
     Indication: Non-small cell lung cancer
     Route: 065
  3. PEMBROLIZUMAB [Suspect]
     Active Substance: PEMBROLIZUMAB
     Indication: Non-small cell lung cancer
     Route: 065
  4. CEMIPLIMAB [Suspect]
     Active Substance: CEMIPLIMAB
     Indication: Non-small cell lung cancer
     Route: 065

REACTIONS (9)
  - Diarrhoea [Unknown]
  - Colitis [Unknown]
  - Pneumonitis [Fatal]
  - Hepatotoxicity [Fatal]
  - Nephropathy toxic [Unknown]
  - Thyroid disorder [Unknown]
  - Hypophysitis [Unknown]
  - Skin toxicity [Fatal]
  - Immune system disorder [Unknown]
